FAERS Safety Report 8092526-7 (Version None)
Quarter: 2012Q1

REPORT INFORMATION
  Report Type: 
  Country: None (occurrence: None)
  Receive Date: 20120128
  Receipt Date: 20110828
  Transmission Date: 20120608
  Serious: No
  Sender: FDA-Public Use
  Company Number: US-ABBOTT-11P-163-0849837-00

PATIENT
  Age: 38 Year
  Sex: Male

DRUGS (2)
  1. BENICAR [Concomitant]
     Indication: HYPERTENSION
     Dosage: DAILY
  2. HUMIRA [Suspect]
     Indication: PSORIASIS
     Dates: start: 20110530, end: 20110716

REACTIONS (1)
  - AMNESIA [None]
